FAERS Safety Report 19561680 (Version 1)
Quarter: 2021Q3

REPORT INFORMATION
  Report Type: Spontaneous
  Country: US (occurrence: US)
  Receive Date: 20210716
  Receipt Date: 20210716
  Transmission Date: 20211014
  Serious: Yes (Other)
  Sender: FDA-Public Use
  Company Number: None

PATIENT
  Age: 51 Year
  Sex: Female
  Weight: 59.85 kg

DRUGS (2)
  1. VIVITROL 380 IM [Concomitant]
     Dates: start: 20210511, end: 20210605
  2. VIVITROL [Suspect]
     Active Substance: NALTREXONE
     Indication: ALCOHOLISM
     Dosage: ?          OTHER FREQUENCY:QM;?
     Route: 030
     Dates: start: 20210511, end: 20210605

REACTIONS (2)
  - Abdominal mass [None]
  - Tenderness [None]

NARRATIVE: CASE EVENT DATE: 20210605
